FAERS Safety Report 7787194-5 (Version None)
Quarter: 2011Q3

REPORT INFORMATION
  Report Type: 
  Country: None (occurrence: None)
  Receive Date: 20110929
  Receipt Date: 20110922
  Transmission Date: 20111222
  Serious: Yes (Death, Hospitalization)
  Sender: FDA-Public Use
  Company Number: ES-PFIZER INC-2011228427

PATIENT
  Age: 12 Year
  Sex: Female

DRUGS (2)
  1. PENICILLIN NOS [Suspect]
     Indication: BRONCHITIS
  2. IBUPROFEN [Suspect]
     Indication: BRONCHITIS

REACTIONS (1)
  - TOXIC EPIDERMAL NECROLYSIS [None]
